FAERS Safety Report 24663129 (Version 1)
Quarter: 2024Q4

REPORT INFORMATION
  Report Type: Spontaneous
  Country: US (occurrence: US)
  Receive Date: 20241126
  Receipt Date: 20241126
  Transmission Date: 20250115
  Serious: Yes (Hospitalization)
  Sender: ROCHE
  Company Number: US-ROCHE-10000134485

PATIENT
  Sex: Female

DRUGS (4)
  1. ACTEMRA [Suspect]
     Active Substance: TOCILIZUMAB
     Indication: Rheumatoid arthritis
     Dosage: 162 MG/0.9ML
     Route: 058
     Dates: start: 20210929
  2. LOSARTAN [Concomitant]
     Active Substance: LOSARTAN
  3. PREDNISONE [Concomitant]
     Active Substance: PREDNISONE
  4. PROLIA [Concomitant]
     Active Substance: DENOSUMAB

REACTIONS (1)
  - Pain [Unknown]
